FAERS Safety Report 14306896 (Version 2)
Quarter: 2017Q4

REPORT INFORMATION
  Report Type: Spontaneous
  Country: US (occurrence: US)
  Receive Date: 20171220
  Receipt Date: 20171220
  Transmission Date: 20180321
  Serious: Yes (Death)
  Sender: FDA-Public Use
  Company Number: US-VIFOR (INTERNATIONAL) INC.-VIT-2017-12589

PATIENT
  Age: 81 Year
  Sex: Male
  Weight: 83.08 kg

DRUGS (6)
  1. FUROSEMIDE. [Concomitant]
     Active Substance: FUROSEMIDE
  2. SPIRONOLACTONE. [Concomitant]
     Active Substance: SPIRONOLACTONE
     Dosage: ONE TABLET ALTERNATING EVERY OTHER DAY WITH ONE-HALF TABLET EVERY OTHER DAY
  3. ACETYLSALICYLIC ACID [Concomitant]
     Active Substance: ASPIRIN
  4. PROTONIX [Concomitant]
     Active Substance: PANTOPRAZOLE SODIUM
  5. SPIRONOLACTONE. [Concomitant]
     Active Substance: SPIRONOLACTONE
     Dosage: ONE TABLET ALTERNATING EVERY OTHER DAY WITH ONE-HALF TABLET EVERY OTHER DAY
  6. VELTASSA [Suspect]
     Active Substance: PATIROMER
     Indication: HYPERKALAEMIA
     Route: 048
     Dates: start: 20170710

REACTIONS (2)
  - Cardiac failure congestive [Fatal]
  - Constipation [Unknown]

NARRATIVE: CASE EVENT DATE: 201708
